FAERS Safety Report 9635707 (Version 1)
Quarter: 2013Q4

REPORT INFORMATION
  Report Type: Spontaneous
  Country: GB (occurrence: GB)
  Receive Date: 20131021
  Receipt Date: 20131021
  Transmission Date: 20140711
  Serious: Yes (Life-Threatening)
  Sender: FDA-Public Use
  Company Number: GB-GLAXOSMITHKLINE-B0929763A

PATIENT
  Age: 25 Year
  Sex: Female
  Weight: 57.15 kg

DRUGS (2)
  1. SEROXAT [Suspect]
     Indication: MAJOR DEPRESSION
     Route: 048
  2. ALCOHOL [Suspect]

REACTIONS (3)
  - Paralysis [Recovered/Resolved]
  - Vomiting [Recovered/Resolved]
  - Alcohol interaction [Unknown]
